FAERS Safety Report 9920039 (Version 1)
Quarter: 2014Q1

REPORT INFORMATION
  Report Type: Spontaneous
  Country: PT (occurrence: PT)
  Receive Date: 20140224
  Receipt Date: 20140224
  Transmission Date: 20141002
  Serious: Yes (Other)
  Sender: FDA-Public Use
  Company Number: PHHY2014PT021768

PATIENT
  Age: 34 Year
  Sex: Female

DRUGS (1)
  1. VOLTAREN [Suspect]
     Indication: RENAL COLIC
     Dosage: UNK UKN, UNK
     Dates: start: 20130622

REACTIONS (2)
  - Subcutaneous abscess [Recovered/Resolved]
  - Drug hypersensitivity [Unknown]
